FAERS Safety Report 19806403 (Version 2)
Quarter: 2021Q3

REPORT INFORMATION
  Report Type: Report from Study
  Country: AR (occurrence: AR)
  Receive Date: 20210909
  Receipt Date: 20210929
  Transmission Date: 20211014
  Serious: Yes (Other)
  Sender: FDA-Public Use
  Company Number: AR-PUMA BIOTECHNOLOGY, INC.-2021-PUM-AR004091

PATIENT

DRUGS (10)
  1. LOPERAMIDE [Concomitant]
     Active Substance: LOPERAMIDE
     Indication: PRODUCT USED FOR UNKNOWN INDICATION
     Dosage: ONLY IF NECESSARY, 1 DF EVERY TIME SHE ?GOES TO THE BATHROOM? ()
     Route: 065
  2. NERLYNX [Suspect]
     Active Substance: NERATINIB
     Dosage: 200 MG
     Route: 048
     Dates: start: 20210713, end: 20210719
  3. CALCIUM [Concomitant]
     Active Substance: CALCIUM
     Indication: PRODUCT USED FOR UNKNOWN INDICATION
     Dosage: UNK
     Route: 065
  4. LOPERAMIDE [Concomitant]
     Active Substance: LOPERAMIDE
     Dosage: 2 TO 3 DF AS NECESSARY
     Route: 065
  5. ANASTROZOLE. [Concomitant]
     Active Substance: ANASTROZOLE
     Indication: PRODUCT USED FOR UNKNOWN INDICATION
     Dosage: UNK
     Route: 065
  6. NERLYNX [Suspect]
     Active Substance: NERATINIB
     Indication: HER2 POSITIVE BREAST CANCER
     Dosage: START DOSE OF NERLYNX: 120MG (UNAPPROVED DOSE)
     Route: 048
     Dates: start: 20210628, end: 20210705
  7. NERLYNX [Suspect]
     Active Substance: NERATINIB
     Dosage: 160 MG
     Route: 048
     Dates: start: 20210706, end: 20210712
  8. NERLYNX [Suspect]
     Active Substance: NERATINIB
     Dosage: 240 MG
     Route: 048
     Dates: start: 20210720, end: 20210821
  9. LEVOTHYROXINE SODIUM. [Concomitant]
     Active Substance: LEVOTHYROXINE SODIUM
     Indication: HYPOTHYROIDISM
     Dosage: 150 UG
     Route: 065
  10. VITAMIN D [Concomitant]
     Active Substance: VITAMIN D NOS
     Indication: PRODUCT USED FOR UNKNOWN INDICATION
     Dosage: UNK
     Route: 065

REACTIONS (12)
  - Off label use [Recovered/Resolved]
  - COVID-19 [Unknown]
  - Hypoaesthesia [Not Recovered/Not Resolved]
  - Anaemia [Unknown]
  - Headache [Unknown]
  - Abdominal distension [Unknown]
  - Inflammation [Not Recovered/Not Resolved]
  - Hypertension [Unknown]
  - Abdominal pain upper [Unknown]
  - Neuropathy peripheral [Unknown]
  - Diarrhoea [Not Recovered/Not Resolved]
  - Pain in extremity [Not Recovered/Not Resolved]

NARRATIVE: CASE EVENT DATE: 20210628
